FAERS Safety Report 26135950 (Version 1)
Quarter: 2025Q4

REPORT INFORMATION
  Report Type: Other
  Country: GB (occurrence: GB)
  Receive Date: 20251209
  Receipt Date: 20251209
  Transmission Date: 20260118
  Serious: Yes (Other)
  Sender: GLENMARK
  Company Number: None

PATIENT
  Age: 40 Year
  Sex: Female
  Weight: 92 kg

DRUGS (1)
  1. DAPAGLIFLOZIN [Suspect]
     Active Substance: DAPAGLIFLOZIN
     Indication: Diabetes mellitus
     Dosage: 10 MILLIGRAM, QD
     Route: 065
     Dates: start: 20251117

REACTIONS (3)
  - Renal pain [Not Recovered/Not Resolved]
  - Medication error [Unknown]
  - Thirst [Unknown]

NARRATIVE: CASE EVENT DATE: 20251128
